FAERS Safety Report 8599399-4 (Version None)
Quarter: 2012Q3

REPORT INFORMATION
  Report Type: 
  Country: None (occurrence: None)
  Receive Date: 20120816
  Receipt Date: 20120814
  Transmission Date: 20120928
  Serious: Yes (Hospitalization, Other)
  Sender: FDA-Public Use
  Company Number: PHEH2012US014474

PATIENT
  Sex: Female
  Weight: 59 kg

DRUGS (5)
  1. CELEBREX [Concomitant]
     Dosage: 100 UKN, BID
     Route: 048
  2. FOSAMAX [Concomitant]
     Indication: STRESS FRACTURE
     Dosage: 250 MG, DAILY
     Route: 048
     Dates: start: 20060101, end: 20090101
  3. FOSAMAX [Concomitant]
     Indication: BONE DENSITY DECREASED
  4. ESTROGEN NOS [Concomitant]
     Dosage: 2 MG, DAILY
     Route: 048
  5. RECLAST [Suspect]
     Dosage: 5 MG, YEARLY
     Route: 042
     Dates: start: 20090301

REACTIONS (6)
  - STRESS FRACTURE [None]
  - PATHOLOGICAL FRACTURE [None]
  - FEMUR FRACTURE [None]
  - BONE PAIN [None]
  - PAIN IN EXTREMITY [None]
  - FALL [None]
